FAERS Safety Report 8375513-0 (Version None)
Quarter: 2012Q1

REPORT INFORMATION
  Report Type: 
  Country: None (occurrence: None)
  Receive Date: 20120323
  Receipt Date: 20110221
  Transmission Date: 20120608
  Serious: Yes (Other)
  Sender: FDA-Public Use
  Company Number: 163-21880-11023067

PATIENT
  Age: 85 Year
  Sex: Female

DRUGS (1)
  1. REVLIMID [Suspect]
     Indication: MULTIPLE MYELOMA
     Dosage: 10 MG, DAILY FOR 21 DAYS, OFF 7, PO
     Route: 048
     Dates: start: 20110115

REACTIONS (4)
  - DYSPNOEA [None]
  - BLOOD SODIUM DECREASED [None]
  - OEDEMA PERIPHERAL [None]
  - FATIGUE [None]
